FAERS Safety Report 8837398 (Version 1)
Quarter: 2012Q4

REPORT INFORMATION
  Report Type: 
  Country: NL (occurrence: NL)
  Receive Date: 20121012
  Receipt Date: 20121012
  Transmission Date: 20130627
  Serious: Yes (Other)
  Sender: FDA-Public Use
  Company Number: PHHY2012NL078908

PATIENT
  Age: 51 Year
  Sex: Male
  Weight: 72 kg

DRUGS (9)
  1. ZOMETA [Suspect]
     Indication: PROSTATE CANCER METASTATIC
     Dosage: 4 mg/100ml, 1x per 28 days
     Dates: start: 20120225
  2. ZOMETA [Suspect]
     Dosage: 4 mg/100ml, 1x per 28 days
     Dates: start: 20120326
  3. ZOMETA [Suspect]
     Dosage: 4 mg/100ml, 1x per 28 days
     Dates: start: 20120813
  4. ZOMETA [Suspect]
     Dosage: 4 mg/100ml, 1x per 28 days
     Dates: start: 20120910
  5. ZOMETA [Suspect]
     Dosage: 4 mg/100ml, 1x per 28 days
  6. OXYCONTIN [Concomitant]
     Dosage: 80 mg, 2dd
  7. PREDNISONE [Concomitant]
     Dosage: 5 mg, 2dd
  8. MAGNESIUM OXIDE [Concomitant]
     Dosage: 100 mg, 2dd
  9. JEVTANA [Concomitant]

REACTIONS (3)
  - Abscess jaw [Recovered/Resolved]
  - Toothache [Recovered/Resolved]
  - Inflammation [Recovered/Resolved]
